FAERS Safety Report 10430376 (Version 2)
Quarter: 2014Q3

REPORT INFORMATION
  Report Type: Spontaneous
  Country: FR (occurrence: None)
  Receive Date: 20140902
  Receipt Date: 20140909
  Transmission Date: 20150326
  Serious: Yes (Other)
  Sender: FDA-Public Use
  Company Number: AXC-2014-000534

PATIENT
  Age: 77 Year
  Sex: Female

DRUGS (1)
  1. BISMUTH SALICYLATE+METRONIDAZOLE+TETRACYCLINE HCL [Suspect]
     Active Substance: BISMUTH SUBSALICYLATE\METRONIDAZOLE\TETRACYCLINE HYDROCHLORIDE
     Indication: HELICOBACTER INFECTION
     Dates: start: 20140801, end: 20140810

REACTIONS (5)
  - Pharyngeal oedema [None]
  - Sinusitis [None]
  - Cerebellar syndrome [None]
  - Hypersensitivity [None]
  - Swollen tongue [None]

NARRATIVE: CASE EVENT DATE: 20140803
